FAERS Safety Report 11692823 (Version 1)
Quarter: 2015Q4

REPORT INFORMATION
  Report Type: Spontaneous
  Country: US (occurrence: None)
  Receive Date: 20151102
  Receipt Date: 20151102
  Transmission Date: 20160304
  Serious: Yes (Death, Hospitalization)
  Sender: FDA-Public Use
  Company Number: None

PATIENT
  Age: 20 Year
  Sex: Female

DRUGS (5)
  1. METHOTREXATE [Suspect]
     Active Substance: METHOTREXATE
     Dates: end: 20150901
  2. CYTARABINE. [Suspect]
     Active Substance: CYTARABINE
     Dates: end: 20150824
  3. PREDNISONE. [Suspect]
     Active Substance: PREDNISONE
     Dates: end: 20150909
  4. VINCRISTINE SULFATE. [Suspect]
     Active Substance: VINCRISTINE SULFATE
     Dates: end: 20150909
  5. ONCASPAR [Suspect]
     Active Substance: PEGASPARGASE
     Dates: end: 20150828

REACTIONS (18)
  - Hyperbilirubinaemia [None]
  - Transaminases increased [None]
  - Agitation [None]
  - Pulmonary haemorrhage [None]
  - Ascites [None]
  - Venoocclusive liver disease [None]
  - Tumour lysis syndrome [None]
  - Haemorrhage [None]
  - Multi-organ failure [None]
  - Acute kidney injury [None]
  - Gastric haemorrhage [None]
  - Oxygen saturation decreased [None]
  - Epistaxis [None]
  - Hepatomegaly [None]
  - Generalised oedema [None]
  - Haemodialysis [None]
  - Secretion discharge [None]
  - Hepatitis acute [None]

NARRATIVE: CASE EVENT DATE: 20151005
